FAERS Safety Report 7360701-2 (Version None)
Quarter: 2011Q1

REPORT INFORMATION
  Report Type: 
  Country: None (occurrence: None)
  Receive Date: 20110318
  Receipt Date: 20110316
  Transmission Date: 20110831
  Serious: Yes (Hospitalization, Other)
  Sender: FDA-Public Use
  Company Number: US-BRISTOL-MYERS SQUIBB COMPANY-15571532

PATIENT
  Age: 49 Year
  Sex: Female

DRUGS (4)
  1. CETUXIMAB [Suspect]
     Indication: NON-SMALL CELL LUNG CANCER
     Dosage: INTERRUPTED ON 24FEB2011
     Route: 042
     Dates: start: 20110120
  2. ATENOLOL [Concomitant]
     Dates: start: 20110124
  3. ALTACE [Concomitant]
     Dates: start: 20110223
  4. METFORMIN HCL [Concomitant]
     Dates: start: 20110223

REACTIONS (3)
  - ANAEMIA [None]
  - NEUTROPENIA [None]
  - PERICARDIAL EFFUSION [None]
